FAERS Safety Report 4836072-X (Version None)
Quarter: 2005Q4

REPORT INFORMATION
  Report Type: 
  Country: None (occurrence: None)
  Receive Date: 20051123
  Receipt Date: 20050602
  Transmission Date: 20060501
  Serious: Yes (Life-Threatening, Hospitalization, Disabling)
  Sender: FDA-Public Use
  Company Number: US-MERCK-0506USA00572

PATIENT
  Age: 76 Year
  Sex: Female
  Weight: 55 kg

DRUGS (1)
  1. VIOXX [Suspect]
     Indication: ARTHRITIS
     Route: 048
     Dates: start: 20001227, end: 20040501

REACTIONS (11)
  - ABDOMINAL PAIN UPPER [None]
  - AORTIC ARTERIOSCLEROSIS [None]
  - CARPAL TUNNEL SYNDROME [None]
  - COUGH [None]
  - FATIGUE [None]
  - GASTROINTESTINAL PERFORATION [None]
  - HAEMATURIA [None]
  - INTESTINAL ULCER PERFORATION [None]
  - LUNG INFILTRATION [None]
  - PERITONITIS [None]
  - POLYP [None]
